FAERS Safety Report 4422112-9 (Version None)
Quarter: 2004Q3

REPORT INFORMATION
  Report Type: 
  Country: None (occurrence: None)
  Receive Date: 20040806
  Receipt Date: 20040728
  Transmission Date: 20050211
  Serious: No
  Sender: FDA-Public Use
  Company Number: 04H-163-0268373-00

PATIENT
  Age: 34 Year
  Sex: Female
  Weight: 60 kg

DRUGS (3)
  1. MEPERIDINE HCL [Suspect]
     Indication: POSTOPERATIVE ANALGESIA
     Dosage: 15 MG EVERY 6 MINUTES AS NEEDED
  2. HYDROMORPHONE HCL [Concomitant]
  3. KETOROLAC TROMETHAMINE [Concomitant]

REACTIONS (3)
  - ACETABULUM FRACTURE [None]
  - GRAND MAL CONVULSION [None]
  - JOINT DISLOCATION [None]
